FAERS Safety Report 8111314-6 (Version None)
Quarter: 2012Q1

REPORT INFORMATION
  Report Type: 
  Country: None (occurrence: None)
  Receive Date: 20120203
  Receipt Date: 20110826
  Transmission Date: 20120608
  Serious: No
  Sender: FDA-Public Use
  Company Number: US-GLAXOSMITHKLINE-A0942527A

PATIENT
  Age: 30 Year
  Sex: Female

DRUGS (7)
  1. TOPROL-XL [Concomitant]
  2. RECLIPSEN [Concomitant]
  3. MOTRIN [Concomitant]
  4. SINGULAIR [Concomitant]
  5. ALBUTEROL [Concomitant]
  6. LAMICTAL [Suspect]
     Indication: BIPOLAR DISORDER
     Dosage: 200MG TWICE PER DAY
     Route: 048
     Dates: start: 20100601
  7. METFORMIN HCL [Concomitant]

REACTIONS (3)
  - POLYMENORRHOEA [None]
  - ALOPECIA [None]
  - METRORRHAGIA [None]
